FAERS Safety Report 7277270-8 (Version None)
Quarter: 2011Q1

REPORT INFORMATION
  Report Type: 
  Country: None (occurrence: None)
  Receive Date: 20110202
  Receipt Date: 20110202
  Transmission Date: 20110831
  Serious: Yes (Other)
  Sender: FDA-Public Use
  Company Number: None

PATIENT
  Age: 56 Year
  Sex: Male
  Weight: 95.2554 kg

DRUGS (1)
  1. CLONIDINE [Suspect]
     Indication: HYPERTENSION
     Dosage: 1 PATCH WEEKLY TRANSDERMAL
     Route: 062
     Dates: start: 20100501, end: 20100601

REACTIONS (4)
  - PRODUCT ADHESION ISSUE [None]
  - PRODUCT SUBSTITUTION ISSUE [None]
  - APPLICATION SITE IRRITATION [None]
  - PRODUCT SIZE ISSUE [None]
